FAERS Safety Report 21079763 (Version 2)
Quarter: 2022Q4

REPORT INFORMATION
  Report Type: Report from Study
  Country: US (occurrence: US)
  Receive Date: 20220714
  Receipt Date: 20221025
  Transmission Date: 20230113
  Serious: Yes (Other)
  Sender: FDA-Public Use
  Company Number: US-SA-SAC20220712000232

PATIENT
  Sex: Female

DRUGS (4)
  1. AUBAGIO [Suspect]
     Active Substance: TERIFLUNOMIDE
     Indication: Multiple sclerosis
     Dosage: 14 MG, QD
     Route: 048
     Dates: start: 20190303
  2. LOESTRIN NOS [Concomitant]
     Active Substance: ETHINYL ESTRADIOL\NORETHINDRONE ACETATE
  3. ROFERON-A [Concomitant]
     Active Substance: INTERFERON ALFA-2A
  4. NEURONTIN [Concomitant]
     Active Substance: GABAPENTIN

REACTIONS (6)
  - Deafness [Recovering/Resolving]
  - Ear infection viral [Unknown]
  - Middle ear effusion [Unknown]
  - Laryngitis [Recovering/Resolving]
  - Cough [Not Recovered/Not Resolved]
  - Alopecia [Unknown]
